FAERS Safety Report 7359502-0 (Version None)
Quarter: 2011Q1

REPORT INFORMATION
  Report Type: 
  Country: None (occurrence: None)
  Receive Date: 20110317
  Receipt Date: 20091124
  Transmission Date: 20110831
  Serious: No
  Sender: FDA-Public Use
  Company Number: US-PFIZER INC-2009272522

PATIENT
  Age: 88 Year
  Sex: Female
  Weight: 70.3 kg

DRUGS (7)
  1. UNKNOWN MULTIVITAMIN [Concomitant]
     Dosage: UNK
  2. AMLODIPINE BESYLATE [Suspect]
     Dosage: 2.5 MG, DAILY
     Dates: start: 20090810, end: 20090824
  3. HYDROCHLOROTHIAZIDE [Concomitant]
     Dosage: UNK
  4. ASPIRIN [Concomitant]
     Dosage: 81 MG, UNK
  5. CALCIUM [Concomitant]
     Dosage: UNK
  6. PREDNISONE [Suspect]
     Indication: DERMATITIS
     Dosage: UNK
     Dates: start: 20090801
  7. CLONIDINE [Concomitant]
     Dosage: UNK

REACTIONS (4)
  - INSOMNIA [None]
  - DERMATITIS [None]
  - PAIN IN EXTREMITY [None]
  - DIZZINESS [None]
